FAERS Safety Report 11276918 (Version 2)
Quarter: 2015Q3

REPORT INFORMATION
  Report Type: Spontaneous
  Country: DK (occurrence: AT)
  Receive Date: 20150716
  Receipt Date: 20150903
  Transmission Date: 20151125
  Serious: No
  Sender: FDA-Public Use
  Company Number: AT-FRI-1000078063

PATIENT
  Age: 53 Year
  Sex: Female

DRUGS (2)
  1. ESCITALOPRAM [Suspect]
     Active Substance: ESCITALOPRAM OXALATE
     Indication: DEPRESSION
     Dosage: 5 MILLIGRAM
     Route: 048
     Dates: start: 20150608, end: 20150627
  2. ESCITALOPRAM [Suspect]
     Active Substance: ESCITALOPRAM OXALATE
     Dosage: 2.5 MILLIGRAM
     Route: 048
     Dates: start: 20150628

REACTIONS (1)
  - Vitreous opacities [Unknown]

NARRATIVE: CASE EVENT DATE: 20150629
